FAERS Safety Report 23515874 (Version 1)
Quarter: 2024Q1

REPORT INFORMATION
  Report Type: 
  Country: None (occurrence: None)
  Receive Date: 20240213
  Receipt Date: 20240213
  Transmission Date: 20240410
  Serious: No
  Sender: FDA-Public Use
  Company Number: None

PATIENT

DRUGS (5)
  1. TECENTRIQ [Suspect]
     Active Substance: ATEZOLIZUMAB
     Dates: start: 20231207, end: 20231209
  2. DOCETAXEL [Concomitant]
     Active Substance: DOCETAXEL\DOCETAXEL ANHYDROUS
  3. LEUCOVORIN CALCIUM [Concomitant]
     Active Substance: LEUCOVORIN CALCIUM
  4. FLUOROURACIL [Concomitant]
     Active Substance: FLUOROURACIL
  5. OXALIPLATIN [Concomitant]
     Active Substance: OXALIPLATIN

REACTIONS (1)
  - Retinal detachment [None]

NARRATIVE: CASE EVENT DATE: 20231219
